FAERS Safety Report 4633780-0 (Version None)
Quarter: 2005Q2

REPORT INFORMATION
  Report Type: 
  Country: None (occurrence: None)
  Receive Date: 20050325
  Receipt Date: 20041221
  Transmission Date: 20051028
  Serious: No
  Sender: FDA-Public Use
  Company Number: USA041286759

PATIENT
  Sex: Female

DRUGS (1)
  1. FORTEO [Suspect]
     Dosage: 20 UG/1 DAY
     Dates: start: 20040801

REACTIONS (2)
  - NASOPHARYNGITIS [None]
  - PAIN IN EXTREMITY [None]
